FAERS Safety Report 24873932 (Version 1)
Quarter: 2025Q1

REPORT INFORMATION
  Report Type: Spontaneous
  Country: US (occurrence: None)
  Receive Date: 20250121
  Receipt Date: 20250121
  Transmission Date: 20250409
  Serious: No
  Sender: FDA-CTU
  Company Number: None

PATIENT
  Age: 60 Year
  Sex: Male
  Weight: 87.75 kg

DRUGS (13)
  1. HADLIMA [Suspect]
     Active Substance: ADALIMUMAB-BWWD
     Indication: Rheumatoid arthritis
     Dosage: OTHER QUANTITY : 1 INJECTION(S);?OTHER FREQUENCY : EVERY OTHER WEEK;?
     Route: 030
     Dates: start: 20241212, end: 20241225
  2. ARMOUR THYROID [Concomitant]
     Active Substance: THYROID, PORCINE
  3. PREDNISONE [Concomitant]
     Active Substance: PREDNISONE
  4. VITAMIN C [Concomitant]
     Active Substance: ASCORBIC ACID
  5. VITAMIN E [Concomitant]
     Active Substance: .ALPHA.-TOCOPHEROL
  6. VITAMIN D3 [Concomitant]
     Active Substance: CHOLECALCIFEROL
  7. Vit k2 [Concomitant]
  8. ZINC [Concomitant]
     Active Substance: ZINC
  9. PRASTERONE [Concomitant]
     Active Substance: PRASTERONE
  10. CALCIUM [Concomitant]
     Active Substance: CALCIUM
  11. MAGNESIUM [Concomitant]
     Active Substance: MAGNESIUM
  12. seenium [Concomitant]
  13. milk thisle [Concomitant]

REACTIONS (24)
  - Pain [None]
  - Dizziness [None]
  - Back pain [None]
  - Myalgia [None]
  - Eye pain [None]
  - Chills [None]
  - Nasal congestion [None]
  - Insomnia [None]
  - Peripheral swelling [None]
  - Peripheral swelling [None]
  - Vision blurred [None]
  - Chills [None]
  - Depression [None]
  - Headache [None]
  - Rash [None]
  - Irritability [None]
  - Decreased appetite [None]
  - Nausea [None]
  - Musculoskeletal stiffness [None]
  - Swelling face [None]
  - Fatigue [None]
  - Asthenia [None]
  - Asthenia [None]
  - Dyspnoea [None]

NARRATIVE: CASE EVENT DATE: 20241220
